FAERS Safety Report 4665106-0 (Version None)
Quarter: 2005Q2

REPORT INFORMATION
  Report Type: 
  Country: None (occurrence: None)
  Receive Date: 20050517
  Receipt Date: 20050502
  Transmission Date: 20051028
  Serious: Yes (Death, Life-Threatening, Hospitalization)
  Sender: FDA-Public Use
  Company Number: EWC050543864

PATIENT
  Age: 81 Year
  Sex: Female

DRUGS (5)
  1. TERIPARATIDE [Suspect]
     Indication: OSTEOPOROSIS
     Dosage: 20 UG/1 DAY
     Dates: start: 20041001, end: 20050207
  2. LEVOTHYROXINE SODIUM [Concomitant]
     Indication: SPINAL FRACTURE
  3. CARDARONE (AMIODARONE HYDROCHLORIDE) [Concomitant]
  4. MARCUMAR [Concomitant]
  5. SIFROL (PRAMIPEXOLE DIHYDROCHLORIDE) [Concomitant]

REACTIONS (2)
  - PANCREATITIS ACUTE [None]
  - SHOCK [None]
